FAERS Safety Report 5243936-4 (Version None)
Quarter: 2007Q1

REPORT INFORMATION
  Report Type: 
  Country: None (occurrence: None)
  Receive Date: 20070222
  Receipt Date: 20070212
  Transmission Date: 20070707
  Serious: Yes (Other)
  Sender: FDA-Public Use
  Company Number: US-ELI_LILLY_AND_COMPANY-US200601004864

PATIENT
  Age: 37 Year
  Sex: Male
  Weight: 120.18 kg

DRUGS (15)
  1. OLANZAPINE [Suspect]
     Indication: SCHIZOPHRENIA
     Dates: start: 20030601
  2. OLANZAPINE [Suspect]
     Dosage: 10 MG, EACH EVENING
     Dates: start: 20050101, end: 20050424
  3. CYCLOBENZAPRINE HCL [Concomitant]
     Dosage: 10 MG, UNK
  4. QUETIAPINE FUMARATE [Concomitant]
     Dosage: 100 MG, UNK
  5. TOPIRAMATE [Concomitant]
     Dosage: 100 MG, UNK
  6. GABAPENTIN [Concomitant]
     Dosage: 400 MG, UNK
  7. ESCITALOPRAM OXALATE [Concomitant]
     Dosage: 10 MG, UNK
  8. BUPROPION HCL [Concomitant]
     Dosage: 150 MG, UNK
  9. TIZANIDINE HCL [Concomitant]
     Dosage: 4 MG, UNK
  10. OXYCODONE HCL [Concomitant]
  11. ZOLPIDEM TARTRATE [Concomitant]
  12. LAMOTRIGINE [Concomitant]
     Dosage: 25 MG, UNK
  13. PREDNISONE 50MG TAB [Concomitant]
     Dosage: 20 MG, UNK
  14. FELODIPINE [Concomitant]
     Dosage: 5 MG, UNK
  15. RISPERDAL [Concomitant]
     Dosage: 2 MG, UNK

REACTIONS (8)
  - ALANINE AMINOTRANSFERASE INCREASED [None]
  - ASPARTATE AMINOTRANSFERASE INCREASED [None]
  - DIABETES MELLITUS NON-INSULIN-DEPENDENT [None]
  - HAEMATOCRIT DECREASED [None]
  - HAEMOGLOBIN DECREASED [None]
  - HYPERTENSION [None]
  - RED BLOOD CELL COUNT DECREASED [None]
  - WEIGHT INCREASED [None]
